FAERS Safety Report 14525982 (Version 2)
Quarter: 2018Q1

REPORT INFORMATION
  Report Type: Report from Study
  Country: US (occurrence: US)
  Receive Date: 20180213
  Receipt Date: 20180315
  Transmission Date: 20180509
  Serious: Yes (Other)
  Sender: FDA-Public Use
  Company Number: US-PFIZER INC-2017422120

PATIENT
  Age: 81 Year
  Sex: Female

DRUGS (1)
  1. IBRANCE [Suspect]
     Active Substance: PALBOCICLIB
     Indication: BREAST CANCER FEMALE
     Dosage: 100 MG, DAILY
     Route: 048
     Dates: start: 20170920

REACTIONS (19)
  - Cough [Not Recovered/Not Resolved]
  - Diarrhoea [Unknown]
  - Dry skin [Not Recovered/Not Resolved]
  - Hypoacusis [Not Recovered/Not Resolved]
  - Bone marrow failure [Unknown]
  - Dizziness [Unknown]
  - Dysphagia [Unknown]
  - Leukopenia [Unknown]
  - Nausea [Not Recovered/Not Resolved]
  - Pain in extremity [Unknown]
  - Anaemia [Unknown]
  - Constipation [Unknown]
  - Fatigue [Unknown]
  - Mucosal inflammation [Recovered/Resolved]
  - Vomiting [Unknown]
  - Headache [Recovering/Resolving]
  - Hot flush [Recovering/Resolving]
  - Pain [Unknown]
  - Muscle spasms [Unknown]

NARRATIVE: CASE EVENT DATE: 2017
